FAERS Safety Report 15706033 (Version 1)
Quarter: 2018Q4

REPORT INFORMATION
  Report Type: Spontaneous
  Country: US (occurrence: US)
  Receive Date: 20181210
  Receipt Date: 20181210
  Transmission Date: 20190205
  Serious: Yes (Hospitalization)
  Sender: FDA-Public Use
  Company Number: US-LPDUSPRD-20182295

PATIENT
  Age: 36 Year
  Sex: Female

DRUGS (4)
  1. MISOPROSTOL. [Suspect]
     Active Substance: MISOPROSTOL
     Dosage: 800 MCG
     Route: 002
  2. METHYLERGONOVINE MALEATE INJECTION, USP (0740-20) [Suspect]
     Active Substance: METHYLERGONOVINE MALEATE
     Dosage: 0.2 MG
     Route: 030
  3. LACTATED RINGERS SOLUTION [Concomitant]
     Active Substance: CALCIUM CHLORIDE\POTASSIUM CHLORIDE\SODIUM CHLORIDE\SODIUM LACTATE
     Dosage: 3 L
     Route: 065
  4. OXYTOCIN. [Suspect]
     Active Substance: OXYTOCIN
     Dosage: 30 UNITS IN 500 ML NS
     Route: 042

REACTIONS (4)
  - Pulmonary arterial pressure increased [Recovered/Resolved]
  - Hypertension [Recovered/Resolved]
  - Acute pulmonary oedema [Recovered/Resolved]
  - Vasoconstriction [Recovered/Resolved]
